FAERS Safety Report 9778837 (Version 1)
Quarter: 2013Q4

REPORT INFORMATION
  Report Type: Report from Study
  Country: CA (occurrence: CA)
  Receive Date: 20131223
  Receipt Date: 20131223
  Transmission Date: 20140711
  Serious: Yes (Hospitalization)
  Sender: FDA-Public Use
  Company Number: CA-JNJFOC-20131212609

PATIENT
  Age: 58 Year
  Sex: Male
  Weight: 77 kg

DRUGS (7)
  1. REMICADE [Suspect]
     Indication: CROHN^S DISEASE
     Route: 042
     Dates: start: 20131106
  2. REMICADE [Suspect]
     Indication: CROHN^S DISEASE
     Route: 042
     Dates: start: 20110815
  3. BENADRYL [Concomitant]
     Indication: PREMEDICATION
     Route: 048
  4. ACETAMINOPHEN [Concomitant]
     Indication: PREMEDICATION
     Route: 048
  5. SOLUCORTEF [Concomitant]
     Indication: PREMEDICATION
     Route: 042
  6. IMURAN [Concomitant]
     Indication: PREMEDICATION
     Route: 048
  7. PANTOLOC [Concomitant]
     Indication: PREMEDICATION
     Dosage: POSSIBLE 40 MG, ONCE A MONTH AT MOST
     Route: 048

REACTIONS (4)
  - Nephrolithiasis [Recovered/Resolved]
  - Intestinal obstruction [Recovered/Resolved]
  - Clostridium difficile infection [Unknown]
  - Asthenia [Recovered/Resolved]
